FAERS Safety Report 5283112-2 (Version None)
Quarter: 2007Q2

REPORT INFORMATION
  Report Type: 
  Country: None (occurrence: None)
  Receive Date: 20070402
  Receipt Date: 20070319
  Transmission Date: 20071010
  Serious: Yes (Death)
  Sender: FDA-Public Use
  Company Number: US-ELI_LILLY_AND_COMPANY-US200703004130

PATIENT
  Age: 70 Year
  Sex: Male

DRUGS (1)
  1. CYMBALTA [Suspect]

REACTIONS (1)
  - DEATH [None]
